FAERS Safety Report 16105713 (Version 3)
Quarter: 2019Q2

REPORT INFORMATION
  Report Type: Spontaneous
  Country: TR (occurrence: TR)
  Receive Date: 20190322
  Receipt Date: 20190402
  Transmission Date: 20190711
  Serious: Yes (Death)
  Sender: FDA-Public Use
  Company Number: TR-BAYER-2019-055598

PATIENT

DRUGS (2)
  1. WARFARIN [Interacting]
     Active Substance: WARFARIN
     Indication: PROPHYLAXIS
     Route: 048
  2. ACETYLSALICYLIC ACID (CARDIO) [Suspect]
     Active Substance: ASPIRIN
     Indication: PROPHYLAXIS
     Dosage: 100 MG, UNK
     Route: 048

REACTIONS (4)
  - Haemorrhagic stroke [Fatal]
  - Labelled drug-drug interaction medication error [Fatal]
  - Product prescribing issue [None]
  - Product administered to patient of inappropriate age [None]
